FAERS Safety Report 8606842 (Version 2)
Quarter: 2013Q2

REPORT INFORMATION
  Report Type: Spontaneous
  Country: US (occurrence: US)
  Receive Date: 20120611
  Receipt Date: 20130621
  Transmission Date: 20140414
  Serious: No
  Sender: FDA-Public Use
  Company Number: US-ASTRAZENECA-2012SE34539

PATIENT
  Age: 29 Year
  Sex: Male
  Weight: 90.7 kg

DRUGS (5)
  1. NEXIUM [Suspect]
     Indication: ABDOMINAL PAIN UPPER
     Route: 048
     Dates: start: 20110131, end: 20110727
  2. PRILOSEC [Suspect]
     Indication: ABDOMINAL PAIN UPPER
     Route: 048
     Dates: start: 20100502
  3. TUMS [Concomitant]
     Dosage: AS NEEDED
  4. AMOXICILLIN [Concomitant]
     Route: 048
  5. CLARITHROMYCIN [Concomitant]
     Route: 048

REACTIONS (3)
  - Osteoporosis [Unknown]
  - Foot fracture [Unknown]
  - Fall [Unknown]
